FAERS Safety Report 5502164-5 (Version None)
Quarter: 2007Q4

REPORT INFORMATION
  Report Type: 
  Country: None (occurrence: None)
  Receive Date: 20071030
  Receipt Date: 20071022
  Transmission Date: 20080405
  Serious: Yes (Hospitalization)
  Sender: FDA-Public Use
  Company Number: JP-ASTRAZENECA-2007AP06700

PATIENT
  Age: 60 Year
  Sex: Male

DRUGS (2)
  1. CASODEX [Suspect]
     Indication: PROSTATE CANCER
     Route: 048
     Dates: start: 20070801, end: 20071001
  2. NEO-MINOPHAGEN C [Concomitant]
     Indication: HEPATIC CIRRHOSIS
     Route: 041

REACTIONS (1)
  - LIVER DISORDER [None]
